FAERS Safety Report 8351232-1 (Version None)
Quarter: 2012Q2

REPORT INFORMATION
  Report Type: 
  Country: None (occurrence: None)
  Receive Date: 20120510
  Receipt Date: 20120507
  Transmission Date: 20120825
  Serious: Yes (Hospitalization, Other)
  Sender: FDA-Public Use
  Company Number: CH-PFIZER INC-2012085742

PATIENT
  Age: 77 Year
  Sex: Female

DRUGS (2)
  1. TOVIAZ [Suspect]
     Indication: URINARY TRACT INFECTION
  2. TOVIAZ [Suspect]
     Indication: HYPERTONIC BLADDER
     Dosage: 4 MG, 1X/DAY

REACTIONS (4)
  - RENAL FAILURE ACUTE [None]
  - BACK PAIN [None]
  - HYDROURETER [None]
  - HYDRONEPHROSIS [None]
